FAERS Safety Report 6670332-5 (Version None)
Quarter: 2010Q2

REPORT INFORMATION
  Report Type: 
  Country: None (occurrence: None)
  Receive Date: 20100405
  Receipt Date: 20100402
  Transmission Date: 20101027
  Serious: Yes (Death)
  Sender: FDA-Public Use
  Company Number: 2010SP001676

PATIENT
  Age: 59 Year
  Sex: Male
  Weight: 62 kg

DRUGS (7)
  1. TEMODAL [Suspect]
     Indication: GLIOBLASTOMA
     Dosage: 75 MG/M2;QD;PO
     Route: 048
     Dates: start: 20091019, end: 20091129
  2. GLUCOPHAGE [Concomitant]
  3. ALDACTONE [Concomitant]
  4. CRESTOR [Concomitant]
  5. FORTZAAR [Concomitant]
  6. MEDROL [Concomitant]
  7. KEPPRA [Concomitant]

REACTIONS (2)
  - FEBRILE BONE MARROW APLASIA [None]
  - LUNG INFECTION [None]
